FAERS Safety Report 5932952-2 (Version None)
Quarter: 2008Q4

REPORT INFORMATION
  Report Type: 
  Country: None (occurrence: None)
  Receive Date: 20081028
  Receipt Date: 20081021
  Transmission Date: 20090506
  Serious: Yes (Death, Hospitalization)
  Sender: FDA-Public Use
  Company Number: GB-MERCK-0810GBR00043

PATIENT
  Age: 76 Year
  Sex: Male

DRUGS (9)
  1. DECADRON [Suspect]
     Route: 048
     Dates: start: 20080501, end: 20080601
  2. PREDNISOLONE [Suspect]
     Route: 048
     Dates: start: 20080601
  3. DOCETAXEL [Suspect]
     Indication: PROSTATE CANCER
     Route: 042
     Dates: start: 20080501, end: 20080501
  4. DOCETAXEL [Suspect]
     Route: 042
     Dates: start: 20080101, end: 20080501
  5. ALLOPURINOL [Concomitant]
     Indication: GOUT
     Route: 048
  6. MAGNESIUM HYDROXIDE [Concomitant]
     Indication: CONSTIPATION
     Route: 048
     Dates: start: 20080602
  7. POLYETHYLENE GLYCOL 3350 AND POTASSIUM CHLORIDE AND SODIUM CHLORIDE AN [Concomitant]
     Indication: CONSTIPATION
     Route: 048
     Dates: start: 20080603
  8. SOTALOL HYDROCHLORIDE [Concomitant]
     Indication: ARRHYTHMIA
     Route: 048
     Dates: start: 20080201
  9. TAMSULOSIN HYDROCHLORIDE [Concomitant]
     Route: 048
     Dates: start: 20070101

REACTIONS (7)
  - CONSTIPATION [None]
  - FLATULENCE [None]
  - HYPOTENSION [None]
  - ILEUS [None]
  - INTESTINAL PERFORATION [None]
  - NEUTROPENIC SEPSIS [None]
  - RENAL FAILURE ACUTE [None]
